FAERS Safety Report 10353569 (Version 4)
Quarter: 2014Q4

REPORT INFORMATION
  Report Type: Spontaneous
  Country: US (occurrence: US)
  Receive Date: 20140731
  Receipt Date: 20141103
  Transmission Date: 20150528
  Serious: Yes (Hospitalization)
  Sender: FDA-Public Use
  Company Number: US-PFIZER INC-2014194847

PATIENT
  Age: 68 Year
  Sex: Female
  Weight: 75.28 kg

DRUGS (40)
  1. FENTANYL. [Concomitant]
     Active Substance: FENTANYL
     Indication: PAIN
     Dosage: 50 UG,  Q. 72 HOURS
     Route: 062
  2. OXYCODONE [Concomitant]
     Active Substance: OXYCODONE
     Indication: PAIN
     Dosage: 10 MG, EVERY 4 HRS
  3. MEGACE [Concomitant]
     Active Substance: MEGESTROL ACETATE
     Dosage: 20 ML, DAILY
  4. OMEPRAZOLE. [Concomitant]
     Active Substance: OMEPRAZOLE
     Dosage: 20 MG, 2X/DAY
  5. VITAMIN D [Concomitant]
     Active Substance: CHOLECALCIFEROL
     Dosage: UNK
  6. LOSARTAN [Concomitant]
     Active Substance: LOSARTAN
     Dosage: 100 MG, DAILY (1 P.O.Q.DAY)
     Route: 048
  7. VITAMIN E [Concomitant]
     Active Substance: .ALPHA.-TOCOPHEROL
     Dosage: 400 IU, DAILY (1 P.O.Q.DAY)
     Route: 048
  8. SUTENT [Suspect]
     Active Substance: SUNITINIB MALATE
     Dosage: 37.5 MG, CYCLIC DAILY (4 WEEKS, FOLLOWED BY A 2-WEEK REST PERIOD)
     Route: 048
     Dates: start: 20140615
  9. OXYCODONE [Concomitant]
     Active Substance: OXYCODONE
     Dosage: 100 MG, AS NEEDED (2-3 TABS Q 4HR PRN-PAIN )
  10. ALBUTEROL. [Concomitant]
     Active Substance: ALBUTEROL
     Indication: DYSPNOEA
     Dosage: 2 PUFFS EVERY  4 HOURS AS NEEDED
  11. LOSARTAN POTASSIUM W/HYDROCHLOROTHIAZIDE [Concomitant]
     Active Substance: HYDROCHLOROTHIAZIDE\LOSARTAN POTASSIUM
     Dosage: 1 DF, DAILY
  12. LEVOTHYROXINE [Concomitant]
     Active Substance: LEVOTHYROXINE
     Dosage: 75 UG, DAILY (1 P.O.Q.DAY)
     Route: 048
  13. WARFARIN [Concomitant]
     Active Substance: WARFARIN
     Dosage: 1 MG, UNK (3 TABS DAILY AS DIRECTED)
  14. OXYCODONE-ACETAMINOPHEN [Concomitant]
     Active Substance: ACETAMINOPHEN\OXYCODONE HYDROCHLORIDE
     Dosage: UNK  (ACETAMINOPHEN 325MG AND OXYCODONE 5MG AS NEEDED)
  15. PRO AIR HFA [Concomitant]
  16. SUTENT [Suspect]
     Active Substance: SUNITINIB MALATE
     Indication: METASTATIC RENAL CELL CARCINOMA
     Dosage: 50 MG, CYCLIC DAILY (4 WEEKS WITH A 2 WEEK REST)
     Route: 048
     Dates: start: 20140520, end: 20140604
  17. FENTANYL. [Concomitant]
     Active Substance: FENTANYL
     Dosage: 75 UG, DAILY
  18. OXYCODONE [Concomitant]
     Active Substance: OXYCODONE
     Dosage: 30 MG, EVERY 4 HRS (1 TAB Q 4HR PRN-REEVAL )
  19. ALBUTEROL. [Concomitant]
     Active Substance: ALBUTEROL
     Dosage: 90 UG, AS NEEDED
  20. SENOKOT [Concomitant]
     Active Substance: SENNOSIDES
     Dosage: 8.6 MG, UNK (2 TABS AT BEDTIME (HS))
  21. VITAMIN D3 [Concomitant]
     Active Substance: CHOLECALCIFEROL
     Dosage: 1000 UG, DAILY (1 P.O.Q.DAY)
     Route: 048
  22. ASPIRIN. [Concomitant]
     Active Substance: ASPIRIN
     Dosage: 81 MG, DAILY (1 P.O.Q.DAY)
     Route: 048
  23. COLACE [Concomitant]
     Active Substance: DOCUSATE SODIUM
     Dosage: 100 MG, THRICE DAILY AS NEEDED
  24. MEGACE [Concomitant]
     Active Substance: MEGESTROL ACETATE
     Dosage: 800 MG, DAILY
  25. MIRALAX [Concomitant]
     Active Substance: POLYETHYLENE GLYCOL 3350
     Dosage: 17 G, DAILY(1 P.O.Q.DAY)
     Route: 048
  26. HYDROCHLOROTHIAZIDE. [Concomitant]
     Active Substance: HYDROCHLOROTHIAZIDE
     Dosage: 12.5 MG, UNK
  27. ATENOLOL. [Concomitant]
     Active Substance: ATENOLOL
     Dosage: 50 MG, DAILY(1 P.O.Q.DAY)
     Route: 048
  28. PRILOSEC [Concomitant]
     Active Substance: OMEPRAZOLE MAGNESIUM
     Dosage: 10 MG, DAILY(1 P.O.Q.DAY)
     Route: 048
  29. METHYCLOTHIAZIDE. [Concomitant]
     Active Substance: METHYCLOTHIAZIDE
     Dosage: 5 MG, AS NEEDED
  30. STOOL SOFTENER [Concomitant]
     Active Substance: DOCUSATE CALCIUM
     Dosage: 100 G, 3X/DAY
     Route: 048
  31. OXYCODONE [Concomitant]
     Active Substance: OXYCODONE
     Dosage: 10-20 MG EVERY 6 HOURS AS NEEDED
  32. MIRALAX [Concomitant]
     Active Substance: POLYETHYLENE GLYCOL 3350
     Dosage: 17 G, EVERY OTHER DAY
     Route: 048
  33. FENTANYL. [Concomitant]
     Active Substance: FENTANYL
     Dosage: 100 UG, UNK (1 PATCH ON SKIN CHANGED Q 72 HOURS )
  34. OXYCODONE [Concomitant]
     Active Substance: OXYCODONE
     Dosage: 30 MG, UNK
  35. ASPIRIN. [Concomitant]
     Active Substance: ASPIRIN
     Dosage: 81 MG, DAILY
  36. CHOLECALCIFEROL [Concomitant]
     Active Substance: CHOLECALCIFEROL
     Dosage: 1 DF, DAILY
  37. VITAMIN B12 [Concomitant]
     Active Substance: CYANOCOBALAMIN
     Dosage: 1000 UG, DAILY (1 P.O.Q.DAY)
     Route: 048
  38. GABAPENTIN. [Concomitant]
     Active Substance: GABAPENTIN
     Dosage: 100 MG, 3X/DAY
     Route: 048
  39. PREDNISONE. [Concomitant]
     Active Substance: PREDNISONE
     Dosage: 20 MG, DAILY(TAKE 2 TABLETS DAY )
  40. ACETAMINOPHEN PM [Concomitant]
     Active Substance: ACETAMINOPHEN\DIPHENHYDRAMINE HYDROCHLORIDE
     Dosage: UNK

REACTIONS (6)
  - Decreased appetite [Recovering/Resolving]
  - Pain [Recovering/Resolving]
  - Nausea [Recovering/Resolving]
  - Vomiting [Recovering/Resolving]
  - Disease progression [Recovering/Resolving]
  - Metastatic renal cell carcinoma [Recovering/Resolving]

NARRATIVE: CASE EVENT DATE: 2014
